FAERS Safety Report 9445475 (Version 2)
Quarter: 2013Q4

REPORT INFORMATION
  Report Type: Spontaneous
  Country: FR (occurrence: FR)
  Receive Date: 20130807
  Receipt Date: 20131209
  Transmission Date: 20140711
  Serious: Yes (Life-Threatening, Other)
  Sender: FDA-Public Use
  Company Number: FR-PFIZER INC-2013224801

PATIENT
  Age: 49 Year
  Sex: Male

DRUGS (8)
  1. DOXORUBICIN HCL [Suspect]
     Indication: HODGKIN^S DISEASE
     Dosage: UNK
     Route: 042
     Dates: start: 201301, end: 20130614
  2. BLEOMYCIN [Suspect]
     Indication: HODGKIN^S DISEASE
     Dosage: UNK
     Route: 042
     Dates: start: 201301, end: 20130614
  3. VINBLASTINE ANHYDROUS [Suspect]
     Indication: HODGKIN^S DISEASE
     Dosage: UNK
     Route: 042
     Dates: start: 201301, end: 20130614
  4. NEUPOGEN [Suspect]
     Indication: NEUTROPENIA
     Dosage: UNK
     Route: 058
     Dates: start: 201301, end: 20130628
  5. RITUXIMAB [Suspect]
     Indication: HODGKIN^S DISEASE
     Dosage: UNK
     Route: 042
     Dates: start: 201301
  6. ZELITREX [Concomitant]
     Dosage: 500 MG, 2X/DAY IN THE MORNING AND IN THE EVENING
  7. BACTRIM F [Concomitant]
     Dosage: 3 DF, WEEKLY
  8. LEDERFOLIN [Concomitant]
     Dosage: UNK

REACTIONS (8)
  - Interstitial lung disease [Recovered/Resolved]
  - Pulmonary oedema [Unknown]
  - Bronchiectasis [Unknown]
  - Acute respiratory distress syndrome [Unknown]
  - Neutropenia [Unknown]
  - Pyrexia [Unknown]
  - General physical health deterioration [Unknown]
  - Respiratory acidosis [Unknown]
